FAERS Safety Report 5811353-1 (Version None)
Quarter: 2008Q3

REPORT INFORMATION
  Report Type: 
  Country: None (occurrence: None)
  Receive Date: 20080716
  Receipt Date: 20080710
  Transmission Date: 20090109
  Serious: Yes (Hospitalization)
  Sender: FDA-Public Use
  Company Number: AU-ASTRAZENECA-2007AP04684

PATIENT
  Age: 25422 Day
  Sex: Male
  Weight: 89 kg

DRUGS (16)
  1. SYMBICORT [Suspect]
     Indication: CHRONIC OBSTRUCTIVE PULMONARY DISEASE
     Dosage: 320/9 UG BID
     Route: 055
     Dates: start: 20070616, end: 20070727
  2. SPIRIVA [Suspect]
     Route: 055
     Dates: start: 20070613, end: 20070630
  3. SPIRIVA [Suspect]
     Route: 055
     Dates: start: 20070702
  4. BRICANYL [Concomitant]
     Indication: CHRONIC OBSTRUCTIVE PULMONARY DISEASE
     Dates: start: 20070613
  5. LIPITOR [Concomitant]
     Indication: HYPERCHOLESTEROLAEMIA
     Dosage: STARTED }6 MONTHS
     Route: 048
  6. BICOR [Concomitant]
     Indication: HYPERTENSION
     Dosage: STARTED }6 MONTHS
     Route: 048
  7. UREMIDE [Concomitant]
     Indication: PULMONARY HYPERTENSION
     Dosage: STARTED }6 MONTHS
     Route: 048
  8. PRESSIN [Concomitant]
     Indication: BENIGN PROSTATIC HYPERPLASIA
     Route: 048
  9. NORVASC [Concomitant]
     Indication: HYPERTENSION
     Dosage: STARTED }6 MONTHS
     Route: 048
  10. TALOHEXAL [Concomitant]
     Indication: MAJOR DEPRESSION
     Dosage: STARTED }6 MONTHS
     Route: 048
  11. PANAMAX [Concomitant]
     Indication: PAIN
     Route: 048
  12. ASPIRIN [Concomitant]
     Indication: PROPHYLAXIS
     Dosage: STARTED }6 MONTHS
     Route: 048
  13. ASPIRIN [Concomitant]
     Dosage: STARTED }6 MONTHS
     Route: 048
  14. NITROGLYCERIN [Concomitant]
     Indication: CARDIAC DISORDER
     Route: 048
  15. BISOPROLOL FUMARATE [Concomitant]
  16. SERETIDE [Concomitant]

REACTIONS (1)
  - PLEURITIC PAIN [None]
